FAERS Safety Report 19507610 (Version 2)
Quarter: 2021Q3

REPORT INFORMATION
  Report Type: Spontaneous
  Country: US (occurrence: US)
  Receive Date: 20210708
  Receipt Date: 20210908
  Transmission Date: 20211014
  Serious: Yes (Hospitalization)
  Sender: FDA-Public Use
  Company Number: US-TEVA-2021-US-1928854

PATIENT
  Age: 57 Year
  Sex: Male

DRUGS (8)
  1. NEBULIZED ALBUTEROL WITH HYPERTONIC SALINE [Concomitant]
     Indication: PRODUCT USED FOR UNKNOWN INDICATION
     Route: 055
  2. TOBRAMYCIN INHALATION SOLUTION [Suspect]
     Active Substance: TOBRAMYCIN
     Indication: PNEUMONIA PSEUDOMONAL
     Dosage: OVER 2 YEARS
     Route: 055
  3. AZTREONAM INHALATION SOLUTION [Concomitant]
     Indication: PNEUMONIA PSEUDOMONAL
     Route: 055
  4. ELEXA/TEZ/IVA [Concomitant]
     Indication: IMMUNOMODULATORY THERAPY
     Route: 065
  5. DORNASE?ALPHA [Concomitant]
     Indication: PRODUCT USED FOR UNKNOWN INDICATION
     Route: 065
  6. TOBRAMYCIN INHALATION SOLUTION [Suspect]
     Active Substance: TOBRAMYCIN
     Indication: INHALATION THERAPY
     Dosage: 600 MILLIGRAM DAILY; ON DAY 25 OF 28 DAYS THERAPY DURING HOSPITALIZATION DUE TO ACUTE KIDNEY INJURY
     Route: 055
  7. AZITHROMYCIN ANHYDROUS. [Concomitant]
     Active Substance: AZITHROMYCIN ANHYDROUS
     Indication: PRODUCT USED FOR UNKNOWN INDICATION
     Route: 065
  8. AZTREONAM INHALATION SOLUTION [Concomitant]
     Indication: INHALATION THERAPY

REACTIONS (3)
  - Toxicity to various agents [Unknown]
  - Vestibular disorder [Unknown]
  - Acute kidney injury [Recovering/Resolving]
